FAERS Safety Report 7047446-3 (Version None)
Quarter: 2010Q4

REPORT INFORMATION
  Report Type: 
  Country: None (occurrence: None)
  Receive Date: 20101015
  Receipt Date: 20101007
  Transmission Date: 20110411
  Serious: Yes (Death)
  Sender: FDA-Public Use
  Company Number: US-GENENTECH-307388

PATIENT
  Sex: Female
  Weight: 49.44 kg

DRUGS (1)
  1. RITUXIMAB [Suspect]
     Indication: RHEUMATOID ARTHRITIS
     Dosage: 1000 MG, Q6M
     Route: 042
     Dates: start: 20070426

REACTIONS (1)
  - PNEUMONIA ASPIRATION [None]
